FAERS Safety Report 9498490 (Version 1)
Quarter: 2013Q3

REPORT INFORMATION
  Report Type: Spontaneous
  Country: US (occurrence: None)
  Receive Date: 20130903
  Receipt Date: 20130903
  Transmission Date: 20140515
  Serious: Yes (Other)
  Sender: FDA-Public Use
  Company Number: None

PATIENT
  Sex: Female

DRUGS (4)
  1. AVEENO ULTRA-CALMING FOAMING CLEANSER [Suspect]
     Route: 061
     Dates: start: 20130813, end: 20130813
  2. AVEENO POS RADIANT INTENS NGHT CRM [Suspect]
     Route: 061
     Dates: start: 20130812, end: 20130812
  3. BIRTH CONTROL PILL [Concomitant]
  4. NONE [Concomitant]

REACTIONS (5)
  - Swelling face [None]
  - Local swelling [None]
  - Dry skin [None]
  - Pruritus [None]
  - Eye swelling [None]
